FAERS Safety Report 23693961 (Version 5)
Quarter: 2024Q4

REPORT INFORMATION
  Report Type: Spontaneous
  Country: NL (occurrence: NL)
  Receive Date: 20240401
  Receipt Date: 20241203
  Transmission Date: 20250114
  Serious: Yes (Death, Other)
  Sender: MYLAN
  Company Number: NL-KRKA-NL2024K04166LIT

PATIENT
  Age: 74 Year
  Sex: Male

DRUGS (10)
  1. SUNITINIB [Suspect]
     Active Substance: SUNITINIB
     Indication: Chromophobe renal cell carcinoma
     Dosage: 50 MILLIGRAM, QD (50 MG/DAY ON THE STANDARD 4-WEEK ON 2-WEEK OFF SCHEDULE)
     Route: 065
  2. SUNITINIB [Suspect]
     Active Substance: SUNITINIB
     Indication: Metastases to liver
  3. SUNITINIB [Suspect]
     Active Substance: SUNITINIB
     Indication: Metastases to bone
  4. SUNITINIB [Suspect]
     Active Substance: SUNITINIB
     Indication: Metastases to lymph nodes
  5. EVEROLIMUS [Suspect]
     Active Substance: EVEROLIMUS
     Indication: Chromophobe renal cell carcinoma
     Dosage: UNK
     Route: 065
  6. EVEROLIMUS [Suspect]
     Active Substance: EVEROLIMUS
     Indication: Metastases to bone
  7. EVEROLIMUS [Suspect]
     Active Substance: EVEROLIMUS
     Indication: Metastases to liver
  8. EVEROLIMUS [Suspect]
     Active Substance: EVEROLIMUS
     Indication: Metastases to lymph nodes
  9. PANTOPRAZOLE [Concomitant]
     Active Substance: PANTOPRAZOLE
     Indication: Product used for unknown indication
     Dosage: UNK
     Route: 065
  10. ACETAMINOPHEN [Concomitant]
     Active Substance: ACETAMINOPHEN
     Indication: Product used for unknown indication
     Dosage: UNK
     Route: 065

REACTIONS (4)
  - Drug ineffective [Fatal]
  - Retinal oedema [Recovering/Resolving]
  - Serous retinal detachment [Recovering/Resolving]
  - Visual acuity reduced [Recovering/Resolving]
